FAERS Safety Report 22400031 (Version 1)
Quarter: 2023Q2

REPORT INFORMATION
  Report Type: Spontaneous
  Country: US (occurrence: None)
  Receive Date: 20230602
  Receipt Date: 20230602
  Transmission Date: 20230722
  Serious: Yes (Life-Threatening, Other)
  Sender: FDA-Public Use
  Company Number: 2023A125455

PATIENT
  Sex: Female

DRUGS (11)
  1. SYMBICORT [Suspect]
     Active Substance: BUDESONIDE\FORMOTEROL FUMARATE DIHYDRATE
     Route: 055
  2. DALIRESP [Suspect]
     Active Substance: ROFLUMILAST
     Route: 048
  3. MATZIM LA [Concomitant]
     Active Substance: DILTIAZEM HYDROCHLORIDE
  4. CLONIDINE [Concomitant]
     Active Substance: CLONIDINE
  5. SOMA [Concomitant]
     Active Substance: CARISOPRODOL
  6. DALIRESP [Concomitant]
     Active Substance: ROFLUMILAST
  7. EDECRINE [Concomitant]
  8. KLOR-CON M10 [Concomitant]
     Active Substance: POTASSIUM CHLORIDE
  9. SINGULAIR [Concomitant]
     Active Substance: MONTELUKAST SODIUM
  10. SPIRIVA [Concomitant]
     Active Substance: TIOTROPIUM BROMIDE MONOHYDRATE
  11. XYZAL [Concomitant]
     Active Substance: LEVOCETIRIZINE DIHYDROCHLORIDE

REACTIONS (1)
  - Anaphylactic reaction [Unknown]
